FAERS Safety Report 4452693-0 (Version None)
Quarter: 2004Q3

REPORT INFORMATION
  Report Type: 
  Country: None (occurrence: None)
  Receive Date: 20040813
  Receipt Date: 20040526
  Transmission Date: 20050211
  Serious: No
  Sender: FDA-Public Use
  Company Number: S04-USA-03797-01

PATIENT
  Age: 76 Year
  Sex: Male

DRUGS (10)
  1. NAMENDA [Suspect]
     Dosage: 10 MG QAM PO
     Route: 048
     Dates: start: 20040501
  2. NAMENDA [Suspect]
     Dosage: 5 MG QHS PO
     Route: 048
     Dates: start: 20040501
  3. NAMENDA [Suspect]
     Dosage: 5 MG QD PO
     Route: 048
     Dates: start: 20040501, end: 20040501
  4. NAMENDA [Suspect]
     Dosage: 5 MG BID PO
     Route: 048
     Dates: start: 20040501, end: 20040501
  5. BETA BLOCKER [Concomitant]
  6. VASODILATOR [Concomitant]
  7. BLOOD PRESSURE [Concomitant]
  8. WATER PILL [Concomitant]
  9. DIABETES MEDICATION [Concomitant]
  10. ZOLOFT [Concomitant]

REACTIONS (1)
  - DIZZINESS [None]
